FAERS Safety Report 9140719 (Version 2)
Quarter: 2013Q1

REPORT INFORMATION
  Report Type: Spontaneous
  Country: US (occurrence: US)
  Receive Date: 20130305
  Receipt Date: 20130313
  Transmission Date: 20140127
  Serious: Yes (Hospitalization, Other)
  Sender: FDA-Public Use
  Company Number: US-009507513-1303USA000508

PATIENT
  Sex: Female
  Weight: 63.49 kg

DRUGS (3)
  1. NUVARING [Suspect]
     Indication: CONTRACEPTION
     Dosage: UNK
     Route: 067
     Dates: start: 20070509, end: 200708
  2. NUVARING [Suspect]
     Dosage: UNK
     Route: 067
     Dates: start: 200910, end: 201002
  3. NUVARING [Suspect]
     Dosage: UNK
     Dates: start: 20101011, end: 20101215

REACTIONS (10)
  - Idiopathic thrombocytopenic purpura [Unknown]
  - Pulmonary embolism [Unknown]
  - Pregnancy [Recovered/Resolved]
  - Maternal exposure during pregnancy [Unknown]
  - Atelectasis [Unknown]
  - Pulmonary infarction [Unknown]
  - Chest pain [Unknown]
  - Ovarian cyst [Unknown]
  - Haematuria [Unknown]
  - Platelet transfusion [Unknown]
